FAERS Safety Report 9623799 (Version 3)
Quarter: 2013Q4

REPORT INFORMATION
  Report Type: Report from Study
  Country: US (occurrence: US)
  Receive Date: 20131015
  Receipt Date: 20131216
  Transmission Date: 20140711
  Serious: Yes (Hospitalization)
  Sender: FDA-Public Use
  Company Number: US-ACTELION-A-NJ2013-89591

PATIENT
  Age: 77 Year
  Sex: Female

DRUGS (2)
  1. TRACLEER [Suspect]
     Indication: PULMONARY ARTERIAL HYPERTENSION
     Dosage: UNK
     Route: 048
  2. COUMADIN [Concomitant]

REACTIONS (7)
  - Balance disorder [Recovering/Resolving]
  - Clostridium difficile colitis [Recovering/Resolving]
  - Back disorder [Unknown]
  - Limb discomfort [Unknown]
  - Urinary tract infection [Recovering/Resolving]
  - Back pain [Recovering/Resolving]
  - Pallor [Recovering/Resolving]
